FAERS Safety Report 21173715 (Version 1)
Quarter: 2022Q3

REPORT INFORMATION
  Report Type: Spontaneous
  Country: FR (occurrence: FR)
  Receive Date: 20220804
  Receipt Date: 20220804
  Transmission Date: 20221026
  Serious: Yes (Other)
  Sender: FDA-Public Use
  Company Number: FR-SANOFI-01210478

PATIENT
  Sex: Male

DRUGS (1)
  1. RIFAMPIN [Suspect]
     Active Substance: RIFAMPIN
     Indication: Hip arthroplasty
     Dosage: 3 DF, TID

REACTIONS (2)
  - Device related infection [Unknown]
  - Off label use [Unknown]
